FAERS Safety Report 11881447 (Version 2)
Quarter: 2016Q1

REPORT INFORMATION
  Report Type: Report from Study
  Country: US (occurrence: US)
  Receive Date: 20151231
  Receipt Date: 20160215
  Transmission Date: 20160526
  Serious: No
  Sender: FDA-Public Use
  Company Number: US-AMGEN-USASL2015138406

PATIENT
  Age: 40 Year
  Sex: Female

DRUGS (1)
  1. ENBREL [Suspect]
     Active Substance: ETANERCEPT
     Indication: RHEUMATOID ARTHRITIS
     Dosage: 50 MG, QWK
     Route: 065
     Dates: start: 20151014

REACTIONS (6)
  - Cough [Unknown]
  - Vomiting [Unknown]
  - Bronchitis [Unknown]
  - Diarrhoea [Unknown]
  - Surgery [Unknown]
  - Arthropathy [Unknown]

NARRATIVE: CASE EVENT DATE: 20151110
